FAERS Safety Report 15679476 (Version 1)
Quarter: 2018Q4

REPORT INFORMATION
  Report Type: Spontaneous
  Country: US (occurrence: US)
  Receive Date: 20181203
  Receipt Date: 20181203
  Transmission Date: 20190205
  Serious: No
  Sender: FDA-Public Use
  Company Number: US-TEVA-2018-US-970082

PATIENT
  Age: 80 Year
  Sex: Female

DRUGS (4)
  1. BUTALBITAL [Concomitant]
     Active Substance: BUTALBITAL
     Dates: start: 20181024
  2. AJOVY [Suspect]
     Active Substance: FREMANEZUMAB-VFRM
     Route: 065
  3. HYDROCODONE [Concomitant]
     Active Substance: HYDROCODONE
  4. EXEDRINE [Concomitant]

REACTIONS (1)
  - Tension headache [Not Recovered/Not Resolved]
